FAERS Safety Report 13380595 (Version 1)
Quarter: 2017Q1

REPORT INFORMATION
  Report Type: Spontaneous
  Country: CA (occurrence: CA)
  Receive Date: 20170329
  Receipt Date: 20170329
  Transmission Date: 20170429
  Serious: Yes (Other)
  Sender: FDA-Public Use
  Company Number: CA-AMGEN-CANSP2016124572

PATIENT
  Age: 57 Year
  Sex: Female

DRUGS (7)
  1. KETOPROFEN. [Concomitant]
     Active Substance: KETOPROFEN
     Indication: PAIN
     Dosage: UNK
  2. ORENCIA [Concomitant]
     Active Substance: ABATACEPT
     Dosage: UNK UNK, QMO
  3. METHOTREXATE SODIUM. [Suspect]
     Active Substance: METHOTREXATE SODIUM
     Indication: RHEUMATOID ARTHRITIS
     Dosage: UNK
     Route: 065
  4. SULFASALAZINE. [Concomitant]
     Active Substance: SULFASALAZINE
     Indication: RHEUMATOID ARTHRITIS
     Dosage: UNK
  5. ENBREL [Suspect]
     Active Substance: ETANERCEPT
     Indication: RHEUMATOID ARTHRITIS
     Dosage: UNK
     Route: 065
     Dates: start: 2009
  6. PREDNISONE. [Concomitant]
     Active Substance: PREDNISONE
     Dosage: 10 MG, UNK
  7. PREDNISONE. [Concomitant]
     Active Substance: PREDNISONE
     Dosage: 5 MG, UNK
     Dates: end: 20160910

REACTIONS (3)
  - Gait disturbance [Unknown]
  - Alopecia [Unknown]
  - Lower respiratory tract infection [Unknown]
